FAERS Safety Report 7112347-9 (Version None)
Quarter: 2010Q4

REPORT INFORMATION
  Report Type: 
  Country: None (occurrence: None)
  Receive Date: 20101119
  Receipt Date: 20100811
  Transmission Date: 20110411
  Serious: No
  Sender: FDA-Public Use
  Company Number: A0875176A

PATIENT
  Age: 87 Year
  Sex: Male

DRUGS (2)
  1. AVODART [Suspect]
     Indication: BENIGN PROSTATIC HYPERPLASIA
     Route: 048
     Dates: start: 20000101
  2. BICALUTAMIDE [Concomitant]

REACTIONS (2)
  - BREAST ENLARGEMENT [None]
  - BREAST PAIN [None]
